FAERS Safety Report 5247519-1 (Version None)
Quarter: 2007Q1

REPORT INFORMATION
  Report Type: 
  Country: None (occurrence: None)
  Receive Date: 20070227
  Receipt Date: 20070216
  Transmission Date: 20070707
  Serious: Yes (Hospitalization)
  Sender: FDA-Public Use
  Company Number: US-ELI_LILLY_AND_COMPANY-US200702003678

PATIENT
  Age: 83 Year
  Sex: Female

DRUGS (7)
  1. FORTEO [Suspect]
     Indication: OSTEOPOROSIS
     Dosage: UNK D/F, UNKNOWN
     Dates: start: 20061005, end: 20070210
  2. COREG [Concomitant]
  3. BENICAR [Concomitant]
  4. PLAVIX [Concomitant]
  5. LOVASTATIN [Concomitant]
  6. ATIVAN [Concomitant]
  7. LEXAPRO [Concomitant]

REACTIONS (3)
  - ARTHRALGIA [None]
  - BLOOD SODIUM DECREASED [None]
  - MENTAL IMPAIRMENT [None]
